FAERS Safety Report 20693557 (Version 1)
Quarter: 2022Q2

REPORT INFORMATION
  Report Type: Spontaneous
  Country: TW (occurrence: TW)
  Receive Date: 20220411
  Receipt Date: 20220411
  Transmission Date: 20220721
  Serious: Yes (Other)
  Sender: FDA-Public Use
  Company Number: TW-009507513-2204TWN002148

PATIENT
  Age: 48 Year
  Sex: Male

DRUGS (2)
  1. PEMBROLIZUMAB [Suspect]
     Active Substance: PEMBROLIZUMAB
     Indication: Oesophageal squamous cell carcinoma
     Dosage: UNK
     Dates: start: 201709
  2. PREDNISOLONE [Suspect]
     Active Substance: PREDNISOLONE
     Indication: Recall phenomenon
     Dosage: 20 MG, BID
     Route: 048
     Dates: start: 2017

REACTIONS (3)
  - Tumour hyperprogression [Unknown]
  - Drug interaction [Unknown]
  - Product use issue [Unknown]

NARRATIVE: CASE EVENT DATE: 20170101
